FAERS Safety Report 12799359 (Version 3)
Quarter: 2017Q1

REPORT INFORMATION
  Report Type: Report from Study
  Country: AU (occurrence: AU)
  Receive Date: 20160930
  Receipt Date: 20170330
  Transmission Date: 20170428
  Serious: Yes (Other)
  Sender: FDA-Public Use
  Company Number: AU-JNJFOC-20160800341

PATIENT
  Age: 45 Year
  Sex: Male

DRUGS (1)
  1. SIMPONI [Suspect]
     Active Substance: GOLIMUMAB
     Indication: PSORIATIC ARTHROPATHY
     Route: 058
     Dates: start: 20160728, end: 20160729

REACTIONS (7)
  - Inappropriate schedule of drug administration [Unknown]
  - Off label use [Unknown]
  - Malaise [Unknown]
  - Drug dose omission [Unknown]
  - Device malfunction [Unknown]
  - Lower respiratory tract infection [Not Recovered/Not Resolved]
  - Sinus disorder [Unknown]

NARRATIVE: CASE EVENT DATE: 2016
